FAERS Safety Report 9247339 (Version 1)
Quarter: 2013Q2

REPORT INFORMATION
  Report Type: Spontaneous
  Country: US (occurrence: US)
  Receive Date: 20130423
  Receipt Date: 20130423
  Transmission Date: 20140414
  Serious: No
  Sender: FDA-Public Use
  Company Number: US-009507513-1304USA008797

PATIENT
  Age: 60 Year
  Sex: Female

DRUGS (3)
  1. LOSARTAN POTASSIUM [Suspect]
     Indication: HYPERTENSION
     Dosage: 50 MG, QD
     Route: 048
     Dates: start: 201104
  2. LOVASTATIN [Concomitant]
  3. SERTRALINE HYDROCHLORIDE [Concomitant]

REACTIONS (1)
  - Hypertension [Unknown]
